FAERS Safety Report 4297672-1 (Version None)
Quarter: 2004Q1

REPORT INFORMATION
  Report Type: 
  Country: None (occurrence: None)
  Receive Date: 20040213
  Receipt Date: 20040129
  Transmission Date: 20041129
  Serious: Yes (Disabling, Other)
  Sender: FDA-Public Use
  Company Number: K200100009

PATIENT
  Age: 55 Year
  Sex: Male

DRUGS (3)
  1. ALTACE [Suspect]
     Indication: HYPERTENSION
     Dosage: 2.5 MG, QD, ORAL; 10 MG,QD, ORAL
     Route: 048
     Dates: start: 19960101, end: 20010101
  2. ALTACE [Suspect]
     Indication: HYPERTENSION
     Dosage: 2.5 MG, QD, ORAL; 10 MG,QD, ORAL
     Route: 048
     Dates: start: 20010101, end: 20010406
  3. KALINOR (POTASSIUM CHLORIDE) [Concomitant]

REACTIONS (10)
  - BLOOD PRESSURE INCREASED [None]
  - CONJUNCTIVITIS [None]
  - DRUG INTOLERANCE [None]
  - EYE DISORDER [None]
  - INTRAOCULAR PRESSURE INCREASED [None]
  - RETINAL DEGENERATION [None]
  - RETINAL DISORDER [None]
  - RETINOPATHY [None]
  - STRESS SYMPTOMS [None]
  - VISUAL DISTURBANCE [None]
